FAERS Safety Report 26038858 (Version 1)
Quarter: 2025Q4

REPORT INFORMATION
  Report Type: Spontaneous
  Country: US (occurrence: US)
  Receive Date: 20251113
  Receipt Date: 20251113
  Transmission Date: 20260119
  Serious: No
  Sender: UROGEN PHARMA
  Company Number: US-UROGEN PHARMA LTD.-2025-UGN-000167

PATIENT

DRUGS (12)
  1. JELMYTO [Suspect]
     Active Substance: MITOMYCIN
     Indication: Product used for unknown indication
     Dosage: UNK, (INSTILLATION)
     Route: 065
     Dates: start: 2025, end: 2025
  2. JELMYTO [Suspect]
     Active Substance: MITOMYCIN
     Dosage: UNK, (INSTILLATION)
     Route: 065
     Dates: start: 2025, end: 2025
  3. JELMYTO [Suspect]
     Active Substance: MITOMYCIN
     Dosage: UNK, (INSTILLATION)
     Route: 065
     Dates: start: 2025, end: 2025
  4. JELMYTO [Suspect]
     Active Substance: MITOMYCIN
     Dosage: UNK, (INSTILLATION)
     Route: 065
     Dates: start: 2025, end: 2025
  5. JELMYTO [Suspect]
     Active Substance: MITOMYCIN
     Dosage: UNK, (INSTILLATION)
     Route: 065
     Dates: start: 2025, end: 2025
  6. JELMYTO [Suspect]
     Active Substance: MITOMYCIN
     Dosage: UNK, (INSTILLATION)
     Route: 065
     Dates: start: 2025, end: 2025
  7. JELMYTO [Suspect]
     Active Substance: MITOMYCIN
     Dosage: UNK, (INSTILLATION) RE-TREATMENT
     Route: 065
     Dates: start: 2025, end: 2025
  8. JELMYTO [Suspect]
     Active Substance: MITOMYCIN
     Dosage: UNK, (INSTILLATION) RE-TREATMENT
     Route: 065
     Dates: start: 2025, end: 2025
  9. JELMYTO [Suspect]
     Active Substance: MITOMYCIN
     Dosage: UNK, (INSTILLATION) RE-TREATMENT
     Route: 065
     Dates: start: 2025, end: 2025
  10. JELMYTO [Suspect]
     Active Substance: MITOMYCIN
     Dosage: UNK, (INSTILLATION) RE-TREATMENT
     Route: 065
     Dates: start: 2025, end: 2025
  11. JELMYTO [Suspect]
     Active Substance: MITOMYCIN
     Dosage: UNK, (INSTILLATION) RE-TREATMENT
     Route: 065
     Dates: start: 2025, end: 2025
  12. JELMYTO [Suspect]
     Active Substance: MITOMYCIN
     Dosage: UNK, (INSTILLATION) RE-TREATMENT
     Route: 065
     Dates: start: 2025, end: 2025

REACTIONS (1)
  - Fatigue [Not Recovered/Not Resolved]

NARRATIVE: CASE EVENT DATE: 20250101
